FAERS Safety Report 7369589-7 (Version None)
Quarter: 2011Q1

REPORT INFORMATION
  Report Type: 
  Country: None (occurrence: None)
  Receive Date: 20110323
  Receipt Date: 20110310
  Transmission Date: 20110831
  Serious: Yes (Other)
  Sender: FDA-Public Use
  Company Number: US-WATSON-2011-03308

PATIENT
  Sex: Male

DRUGS (1)
  1. POTASSIUM CHLORIDE [Suspect]
     Indication: PRODUCT USED FOR UNKNOWN INDICATION
     Dosage: 10 MEQ, BID
     Route: 048

REACTIONS (4)
  - PHARYNGEAL OEDEMA [None]
  - OEDEMA MOUTH [None]
  - REACTION TO DRUG EXCIPIENTS [None]
  - DYSPNOEA [None]
